FAERS Safety Report 23502066 (Version 1)
Quarter: 2024Q1

REPORT INFORMATION
  Report Type: Spontaneous
  Country: US (occurrence: US)
  Receive Date: 20240208
  Receipt Date: 20240208
  Transmission Date: 20240410
  Serious: Yes (Hospitalization, Other)
  Sender: FDA-Public Use
  Company Number: US-HALEON-USCH2024AMR006346

PATIENT
  Age: 70 Year
  Sex: Female

DRUGS (1)
  1. TERBINAFINE [Suspect]
     Active Substance: TERBINAFINE
     Indication: Onychomycosis
     Dosage: UNK
     Route: 065

REACTIONS (13)
  - Cholecystitis chronic [Unknown]
  - Cholestatic liver injury [Unknown]
  - Cholestasis [Unknown]
  - Drug-induced liver injury [Unknown]
  - Hyperbilirubinaemia [Unknown]
  - Jaundice [Unknown]
  - Portal tract inflammation [Unknown]
  - Abdominal discomfort [Unknown]
  - Pruritus [Unknown]
  - Inflammation [Unknown]
  - Benign hepatic neoplasm [Unknown]
  - Hypertransaminasaemia [Unknown]
  - Cholelithiasis [Unknown]
